FAERS Safety Report 16905008 (Version 2)
Quarter: 2020Q2

REPORT INFORMATION
  Report Type: Spontaneous
  Country: GB (occurrence: GB)
  Receive Date: 20191010
  Receipt Date: 20200417
  Transmission Date: 20200713
  Serious: Yes (Hospitalization, Other)
  Sender: FDA-Public Use
  Company Number: GB-MYLANLABS-2019M1094943

PATIENT
  Age: 61 Year
  Sex: Female
  Weight: 47.62 kg

DRUGS (7)
  1. ESCITALOPRAM [Suspect]
     Active Substance: ESCITALOPRAM OXALATE
     Dosage: 15 MILLIGRAM, QD (MORNING)
     Route: 048
     Dates: end: 20190607
  2. DIAZEPAM. [Concomitant]
     Active Substance: DIAZEPAM
     Dosage: 2 MILLIGRAM, QD (AT NIGHT)
  3. COCODAMOL [Concomitant]
     Active Substance: ACETAMINOPHEN\CODEINE PHOSPHATE
     Dosage: UNK
  4. ROPINIROLE. [Concomitant]
     Active Substance: ROPINIROLE
     Dosage: 0.5 MILLIGRAM
  5. ESCITALOPRAM [Suspect]
     Active Substance: ESCITALOPRAM OXALATE
     Indication: DEPRESSION
     Dosage: 5MG INCREASING TO 15MG ONCE A DAYMORNING)
     Route: 048
     Dates: start: 20190417
  6. FEXOFENADINE [Concomitant]
     Active Substance: FEXOFENADINE HYDROCHLORIDE
     Dosage: UNK
  7. EVOREL CONTI [Concomitant]
     Active Substance: ESTRADIOL\NORETHINDRONE ACETATE
     Dosage: UNK

REACTIONS (8)
  - Skin reaction [Recovered/Resolved]
  - Postmenopausal haemorrhage [Recovered/Resolved]
  - Breast tenderness [Recovering/Resolving]
  - Breast swelling [Recovering/Resolving]
  - Gingival bleeding [Recovered/Resolved]
  - Bleeding time prolonged [Recovered/Resolved]
  - Spider naevus [Recovered/Resolved]
  - Breast pain [Recovered/Resolved]

NARRATIVE: CASE EVENT DATE: 20190506
